FAERS Safety Report 17884397 (Version 3)
Quarter: 2020Q4

REPORT INFORMATION
  Report Type: Spontaneous
  Country: US (occurrence: US)
  Receive Date: 20200611
  Receipt Date: 20201021
  Transmission Date: 20210113
  Serious: No
  Sender: FDA-Public Use
  Company Number: US-PFIZER INC-2020226670

PATIENT
  Age: 64 Year
  Sex: Male
  Weight: 70.31 kg

DRUGS (1)
  1. LYRICA [Suspect]
     Active Substance: PREGABALIN
     Indication: FIBROMYALGIA
     Dosage: UNK, 2X/DAY (EITHER 300 MG OR 600 MG, HE WAS UNSURE, TAKES ONE IN MORNING AND ONE AT NIGHT BY MOUTH)
     Route: 048
     Dates: end: 20201005

REACTIONS (1)
  - No adverse event [Not Recovered/Not Resolved]

NARRATIVE: CASE EVENT DATE: 202010
